FAERS Safety Report 12238444 (Version 1)
Quarter: 2016Q2

REPORT INFORMATION
  Report Type: Spontaneous
  Country: US (occurrence: None)
  Receive Date: 20160404
  Receipt Date: 20160404
  Transmission Date: 20160815
  Serious: No
  Sender: FDA-Public Use
  Company Number: None

PATIENT
  Age: 57 Year
  Sex: Female

DRUGS (19)
  1. METHENAMINE HIPPURATE. [Concomitant]
     Active Substance: METHENAMINE HIPPURATE
  2. DEXAMETHASONE. [Concomitant]
     Active Substance: DEXAMETHASONE
  3. TRAZODONE [Concomitant]
     Active Substance: TRAZODONE HYDROCHLORIDE
  4. TRAMADOL. [Concomitant]
     Active Substance: TRAMADOL
  5. CAPECITABINE 500MG TAB [Suspect]
     Active Substance: CAPECITABINE
     Indication: BREAST CANCER
     Dosage: 3-4 TABS BID DAYS 1-14 OF 21 DAY CYCLE PO
     Route: 048
     Dates: start: 20160329
  6. CARISOPRODOL. [Concomitant]
     Active Substance: CARISOPRODOL
  7. LORAZEPAM. [Concomitant]
     Active Substance: LORAZEPAM
  8. PROCHLORPERAZINE. [Concomitant]
     Active Substance: PROCHLORPERAZINE
  9. METOCLOPRAMIDE. [Concomitant]
     Active Substance: METOCLOPRAMIDE
  10. HYDROCODONE BITARTRATE AND ACETAMINOPHEN [Concomitant]
     Active Substance: ACETAMINOPHEN\HYDROCODONE BITARTRATE
  11. OXYCODONE [Concomitant]
     Active Substance: OXYCODONE
  12. LEVOTHYROXINE. [Concomitant]
     Active Substance: LEVOTHYROXINE
  13. RALOXIFENE. [Concomitant]
     Active Substance: RALOXIFENE
  14. DIAZEPAM. [Concomitant]
     Active Substance: DIAZEPAM
  15. DULOXETINE. [Concomitant]
     Active Substance: DULOXETINE
  16. ONDANSETRON [Concomitant]
     Active Substance: ONDANSETRON
  17. APAP/CODEINE [Concomitant]
     Active Substance: ACETAMINOPHEN\CODEINE PHOSPHATE
  18. TEMAZEPAM. [Concomitant]
     Active Substance: TEMAZEPAM
  19. DILTIAZEM [Concomitant]
     Active Substance: DILTIAZEM

REACTIONS (3)
  - Constipation [None]
  - Oesophageal spasm [None]
  - Oesophageal pain [None]

NARRATIVE: CASE EVENT DATE: 20160402
